FAERS Safety Report 4420085-6 (Version None)
Quarter: 2004Q3

REPORT INFORMATION
  Report Type: 
  Country: None (occurrence: None)
  Receive Date: 20040804
  Receipt Date: 20040712
  Transmission Date: 20050211
  Serious: Yes (Hospitalization, Congenital Anomaly)
  Sender: FDA-Public Use
  Company Number: FR_040704429

PATIENT
  Sex: Male

DRUGS (3)
  1. PROZAC [Suspect]
     Dates: start: 20020101, end: 20030728
  2. VALPROATE SODIUM [Concomitant]
  3. LEVOTHYROXINE SODIUM [Concomitant]

REACTIONS (3)
  - DRUG EXPOSURE DURING PREGNANCY [None]
  - PREMATURE CLOSURE OF CRANIAL SUTURES [None]
  - SKULL MALFORMATION [None]
